FAERS Safety Report 21908381 (Version 2)
Quarter: 2023Q1

REPORT INFORMATION
  Report Type: Spontaneous
  Country: US (occurrence: US)
  Receive Date: 20230125
  Receipt Date: 20230128
  Transmission Date: 20230418
  Serious: Yes (Other)
  Sender: FDA-Public Use
  Company Number: US-JNJFOC-20230134220

PATIENT

DRUGS (4)
  1. IMBRUVICA [Suspect]
     Active Substance: IBRUTINIB
     Indication: Glioblastoma
     Route: 048
  2. IMBRUVICA [Suspect]
     Active Substance: IBRUTINIB
     Indication: Glioblastoma
     Route: 048
  3. IMBRUVICA [Suspect]
     Active Substance: IBRUTINIB
     Indication: Glioblastoma
     Route: 048
  4. TEMOZOLOMIDE [Suspect]
     Active Substance: TEMOZOLOMIDE
     Indication: Glioblastoma
     Route: 065

REACTIONS (6)
  - Transaminases abnormal [Unknown]
  - Asthenia [Unknown]
  - Rash [Unknown]
  - Thrombocytopenia [Unknown]
  - Off label use [Unknown]
  - Neutropenia [Unknown]
